FAERS Safety Report 12926329 (Version 5)
Quarter: 2017Q1

REPORT INFORMATION
  Report Type: Spontaneous
  Country: SI (occurrence: SI)
  Receive Date: 20161109
  Receipt Date: 20170109
  Transmission Date: 20170428
  Serious: Yes (Death, Hospitalization)
  Sender: FDA-Public Use
  Company Number: SI-CELGENEUS-SVN-2016100828

PATIENT
  Age: 73 Year
  Sex: Male

DRUGS (1)
  1. AZACITIDINE. [Suspect]
     Active Substance: AZACITIDINE
     Indication: MYELODYSPLASTIC SYNDROME
     Dosage: 150 MG
     Route: 058
     Dates: start: 20160411, end: 20161010

REACTIONS (2)
  - Pyrexia [Fatal]
  - Cough [Fatal]

NARRATIVE: CASE EVENT DATE: 20161010
